FAERS Safety Report 5757862-5 (Version None)
Quarter: 2008Q2

REPORT INFORMATION
  Report Type: 
  Country: None (occurrence: None)
  Receive Date: 20080530
  Receipt Date: 20080519
  Transmission Date: 20081010
  Serious: Yes (Hospitalization, Other)
  Sender: FDA-Public Use
  Company Number: 234703J08USA

PATIENT
  Age: 35 Year
  Sex: Female
  Weight: 48.9885 kg

DRUGS (4)
  1. REBIF [Suspect]
     Indication: MULTIPLE SCLEROSIS
     Dosage: 44 MCG, 3 IN 1 WEEKS, SUBCUTANEOUS
     Route: 058
     Dates: start: 20060412
  2. PREDNISONE [Suspect]
     Indication: FATIGUE
     Dosage: 20 MG, 1 IN 1 DAYS, NOT REPORTED, 10 MG, NOT REPORTED, NOT REPORTED
     Dates: start: 20070901, end: 20080201
  3. PREDNISONE [Suspect]
     Indication: FATIGUE
     Dosage: 20 MG, 1 IN 1 DAYS, NOT REPORTED, 10 MG, NOT REPORTED, NOT REPORTED
     Dates: start: 20080201, end: 20080301
  4. MOTRIN [Concomitant]

REACTIONS (2)
  - ABDOMINAL PAIN [None]
  - PERFORATED ULCER [None]
